FAERS Safety Report 8920891 (Version 1)
Quarter: 2012Q4

REPORT INFORMATION
  Report Type: 
  Country: US (occurrence: US)
  Receive Date: 20121122
  Receipt Date: 20121122
  Transmission Date: 20130627
  Serious: No
  Sender: FDA-Public Use
  Company Number: US-PFIZER INC-2012291466

PATIENT
  Sex: Male

DRUGS (2)
  1. ZOLOFT [Suspect]
     Indication: ANXIETY
     Dosage: 25 mg, 1x/day
  2. ZOLOFT [Suspect]
     Indication: DEPRESSION

REACTIONS (4)
  - Malaise [Unknown]
  - Nausea [Unknown]
  - Gastric disorder [Unknown]
  - Spontaneous penile erection [Unknown]
